APPROVED DRUG PRODUCT: CITALOPRAM HYDROBROMIDE
Active Ingredient: CITALOPRAM HYDROBROMIDE
Strength: EQ 20MG BASE
Dosage Form/Route: TABLET;ORAL
Application: A077232 | Product #002
Applicant: HERITAGE PHARMA LABS INC
Approved: Oct 31, 2005 | RLD: No | RS: No | Type: DISCN